FAERS Safety Report 18571017 (Version 1)
Quarter: 2020Q4

REPORT INFORMATION
  Report Type: Spontaneous
  Country: US (occurrence: US)
  Receive Date: 20201202
  Receipt Date: 20201202
  Transmission Date: 20210114
  Serious: No
  Sender: FDA-Public Use
  Company Number: US-NOVEN PHARMACEUTICALS, INC.-2020US005055

PATIENT
  Sex: Female
  Weight: 65.76 kg

DRUGS (4)
  1. LISINOPRIL. [Concomitant]
     Active Substance: LISINOPRIL
     Indication: PRODUCT USED FOR UNKNOWN INDICATION
     Dosage: UNKNOWN
     Route: 048
  2. ESTRADIOL. [Suspect]
     Active Substance: ESTRADIOL
     Indication: HORMONE REPLACEMENT THERAPY
     Dosage: 0.05MG, TWICE WEEKLY
     Route: 062
  3. MIRENA [Concomitant]
     Active Substance: LEVONORGESTREL
     Indication: PROGESTERONE
     Dosage: UNKNOWN
     Route: 015
  4. ATORVASTATIN [Concomitant]
     Active Substance: ATORVASTATIN
     Indication: PRODUCT USED FOR UNKNOWN INDICATION
     Dosage: 20 MG, FREQUENCY UNKNOWN
     Route: 065

REACTIONS (1)
  - Application site hypersensitivity [Unknown]
